FAERS Safety Report 4591535-X (Version None)
Quarter: 2005Q1

REPORT INFORMATION
  Report Type: 
  Country: None (occurrence: None)
  Receive Date: 20050222
  Receipt Date: 20050202
  Transmission Date: 20050727
  Serious: Yes (Other)
  Sender: FDA-Public Use
  Company Number: ATO-04-0533

PATIENT
  Age: 31 Year
  Sex: Male
  Weight: 104.7809 kg

DRUGS (1)
  1. TRISENOX [Suspect]
     Indication: MYELODYSPLASTIC SYNDROME
     Dosage: SEE IMAGE
     Route: 042
     Dates: start: 20040510, end: 20040521

REACTIONS (9)
  - ATHEROSCLEROSIS [None]
  - BLINDNESS TRANSIENT [None]
  - CARDIAC DISORDER [None]
  - DIPLOPIA [None]
  - DIZZINESS [None]
  - EYE IRRITATION [None]
  - LACRIMATION INCREASED [None]
  - TRANSIENT ISCHAEMIC ATTACK [None]
  - VISION BLURRED [None]
